FAERS Safety Report 17829490 (Version 2)
Quarter: 2020Q2

REPORT INFORMATION
  Report Type: Spontaneous
  Country: US (occurrence: US)
  Receive Date: 20200527
  Receipt Date: 20200601
  Transmission Date: 20200714
  Serious: Yes (Hospitalization, Other)
  Sender: FDA-Public Use
  Company Number: US-PFIZER INC-2020207779

PATIENT
  Age: 63 Year
  Sex: Male
  Weight: 78.93 kg

DRUGS (1)
  1. CHANTIX [Suspect]
     Active Substance: VARENICLINE TARTRATE
     Indication: SMOKING CESSATION THERAPY
     Dosage: 0.5MG, 1 TABLET BY MOUTH IN MORNING FOR 3 DAYS, DAYS 4-14, 1 TABLET IN MORNING AND 1 IN THE EVENING
     Route: 048
     Dates: start: 20200505, end: 20200515

REACTIONS (8)
  - Rash [Recovering/Resolving]
  - Oral mucosal eruption [Recovering/Resolving]
  - Off label use [Unknown]
  - Pyrexia [Recovering/Resolving]
  - Photosensitivity reaction [Not Recovered/Not Resolved]
  - Pain in extremity [Unknown]
  - Skin exfoliation [Unknown]
  - Heart rate increased [Recovering/Resolving]

NARRATIVE: CASE EVENT DATE: 202005
